FAERS Safety Report 5121794-6 (Version None)
Quarter: 2006Q4

REPORT INFORMATION
  Report Type: 
  Country: None (occurrence: None)
  Receive Date: 20061003
  Receipt Date: 20060823
  Transmission Date: 20070319
  Serious: Yes (Hospitalization, Other)
  Sender: FDA-Public Use
  Company Number: 2006-08-0156

PATIENT
  Age: 27 Year
  Sex: Male
  Weight: 80 kg

DRUGS (2)
  1. TEMODAL [Suspect]
     Indication: GLIOBLASTOMA
     Dosage: 600 MG/M2; QD; PO
     Route: 048
     Dates: start: 20060719, end: 20060723
  2. TRILEPTAL [Concomitant]

REACTIONS (11)
  - ABASIA [None]
  - ARTHRALGIA [None]
  - ARTHRITIS BACTERIAL [None]
  - CONVULSION [None]
  - FEBRILE BONE MARROW APLASIA [None]
  - HAEMARTHROSIS [None]
  - JOINT EFFUSION [None]
  - OEDEMA [None]
  - PANCYTOPENIA [None]
  - PERFORMANCE STATUS DECREASED [None]
  - STAPHYLOCOCCAL INFECTION [None]
